FAERS Safety Report 8858202 (Version 1)
Quarter: 2012Q4

REPORT INFORMATION
  Report Type: 
  Country: US (occurrence: US)
  Receive Date: 20121024
  Receipt Date: 20121024
  Transmission Date: 20130627
  Serious: No
  Sender: FDA-Public Use
  Company Number: US-AMGEN-USASP2011067129

PATIENT
  Sex: Female
  Weight: 66.67 kg

DRUGS (4)
  1. ENBREL [Suspect]
     Indication: PRODUCT USED FOR UNKNOWN INDICATION
     Dosage: 25 mg, 2 times/wk
  2. AMBIEN [Concomitant]
     Dosage: 5 mg, UNK
  3. PAXIL [Concomitant]
     Dosage: 10 mg, UNK
  4. IRON [Concomitant]
     Dosage: 18 mg, UNK

REACTIONS (5)
  - Visual impairment [Unknown]
  - Dizziness [Unknown]
  - Injection site bruising [Unknown]
  - Injection site swelling [Unknown]
  - Anaemia [Unknown]
